FAERS Safety Report 4679991-X (Version None)
Quarter: 2005Q2

REPORT INFORMATION
  Report Type: 
  Country: None (occurrence: None)
  Receive Date: 20050531
  Receipt Date: 20050517
  Transmission Date: 20051028
  Serious: Yes (Life-Threatening)
  Sender: FDA-Public Use
  Company Number: B0381594A

PATIENT
  Age: 66 Year
  Sex: Male

DRUGS (17)
  1. ALLOPURINOL [Suspect]
     Dosage: ORAL
     Route: 048
  2. AUGMENTIN '250' [Suspect]
     Indication: LUNG INFECTION
     Dosage: ORAL
     Route: 048
     Dates: end: 20050321
  3. HYDROXYZINE HCL [Suspect]
     Dosage: ORAL
     Route: 048
     Dates: start: 20050310
  4. IOPAMIDOL INJECTION (IOPAMIDOL) [Suspect]
     Indication: SCAN
     Dosage: 100 ML /SINGLE DOSE / INTRAVENOUS
     Route: 042
     Dates: start: 20050322, end: 20050322
  5. OFLOXACIN [Suspect]
     Indication: LUNG INFECTION
     Dosage: ORAL
     Route: 048
     Dates: start: 20050310, end: 20050321
  6. PANTOPRAZOLE SODIUM [Suspect]
     Dosage: ORAL
     Route: 048
     Dates: start: 20050310, end: 20050326
  7. PARACETAMOL [Concomitant]
  8. PRAVASTATIN SODIUM [Concomitant]
  9. PERINDOPRIL ERBUMINE [Concomitant]
  10. MACROGOL 4000 [Concomitant]
  11. EDUCTYL [Concomitant]
  12. FENTANYL [Concomitant]
  13. ENOXAPARIN SODIUM [Concomitant]
  14. PREDNISONE TAB [Concomitant]
  15. MORPHINE SULFATE [Concomitant]
  16. NUTRIION [Concomitant]
  17. BARIUM SULFATE [Concomitant]

REACTIONS (6)
  - ATRIAL FIBRILLATION [None]
  - LUNG INFECTION [None]
  - OESOPHAGEAL NEOPLASM [None]
  - PLEURAL EFFUSION [None]
  - TOXIC EPIDERMAL NECROLYSIS [None]
  - TOXIC SKIN ERUPTION [None]
